FAERS Safety Report 8363013-3 (Version None)
Quarter: 2012Q2

REPORT INFORMATION
  Report Type: 
  Country: None (occurrence: None)
  Receive Date: 20120516
  Receipt Date: 20111006
  Transmission Date: 20120825
  Serious: Yes (Other)
  Sender: FDA-Public Use
  Company Number: US-ALEXION-A201101520

PATIENT
  Sex: Male

DRUGS (1)
  1. SOLIRIS [Suspect]
     Route: 042

REACTIONS (2)
  - GASTRIC LAVAGE [None]
  - MALAISE [None]
